FAERS Safety Report 7321554-1 (Version None)
Quarter: 2011Q1

REPORT INFORMATION
  Report Type: 
  Country: None (occurrence: None)
  Receive Date: 20110228
  Receipt Date: 20100414
  Transmission Date: 20110831
  Serious: No
  Sender: FDA-Public Use
  Company Number: A0855017A

PATIENT
  Age: 50 Year
  Sex: Male

DRUGS (2)
  1. FAMVIR [Concomitant]
  2. VALTREX [Suspect]
     Indication: GENITAL HERPES
     Dosage: 1CAPL TWICE PER DAY
     Route: 048
     Dates: start: 20100306, end: 20100320

REACTIONS (1)
  - RASH [None]
